FAERS Safety Report 19806969 (Version 3)
Quarter: 2021Q4

REPORT INFORMATION
  Report Type: Report from Study
  Country: TR (occurrence: TR)
  Receive Date: 20210908
  Receipt Date: 20211206
  Transmission Date: 20220303
  Serious: Yes (Death, Hospitalization)
  Sender: FDA-Public Use
  Company Number: TR-ABBVIE-21K-161-4070724-00

PATIENT
  Sex: Female
  Weight: 48 kg

DRUGS (3)
  1. CARBIDOPA\LEVODOPA [Suspect]
     Active Substance: CARBIDOPA\LEVODOPA
     Indication: Parkinson^s disease
     Dosage: MORNING DOSE (ML): 5.00 CONTINUOUS DOSE (ML): 4.70 EXTRA DOSE (ML): 1.00
     Route: 050
     Dates: start: 20180524, end: 20210905
  2. CARBIDOPA\LEVODOPA [Suspect]
     Active Substance: CARBIDOPA\LEVODOPA
  3. BENSERAZIDE HYDROCHLORIDE\LEVODOPA [Concomitant]
     Active Substance: BENSERAZIDE HYDROCHLORIDE\LEVODOPA
     Indication: Parkinson^s disease
     Dosage: 1X2
     Route: 048

REACTIONS (5)
  - Cardiac arrest [Fatal]
  - General physical health deterioration [Fatal]
  - C-reactive protein increased [Unknown]
  - Urinary tract infection [Not Recovered/Not Resolved]
  - Device connection issue [Unknown]

NARRATIVE: CASE EVENT DATE: 20210901
